FAERS Safety Report 6644906-1 (Version None)
Quarter: 2010Q1

REPORT INFORMATION
  Report Type: 
  Country: None (occurrence: None)
  Receive Date: 20100322
  Receipt Date: 20100309
  Transmission Date: 20100710
  Serious: Yes (Hospitalization)
  Sender: FDA-Public Use
  Company Number: PHEH2010US02970

PATIENT
  Sex: Female
  Weight: 56.236 kg

DRUGS (11)
  1. GLEEVEC [Suspect]
     Dosage: 200 MG DAILY
     Route: 048
  2. DARVOCET-N 100 [Concomitant]
     Dosage: UNK, UNK
  3. AMARYL [Concomitant]
     Dosage: 2 MG, UNK
  4. MEGESTROL ACETATE [Concomitant]
     Dosage: 20 MG, UNK
  5. NEURONTIN [Concomitant]
     Dosage: 300 MG, UNK
  6. LISINOPRIL [Concomitant]
     Dosage: 30 MG, UNK
  7. SIMVASTATIN [Concomitant]
     Dosage: 20 MG, UNK
  8. METOPROLOL - SLOW RELEASE [Concomitant]
     Dosage: 25 MG, UNK
  9. AMANTADINE HCL [Concomitant]
     Dosage: 100 MG, UNK
  10. BABY ASPIRIN [Concomitant]
     Dosage: 81 MG, UNK
  11. PLAVIX [Concomitant]
     Dosage: 300 MG, UNK

REACTIONS (8)
  - CEREBROVASCULAR ACCIDENT [None]
  - DEHYDRATION [None]
  - DYSARTHRIA [None]
  - FALL [None]
  - HEMIPARESIS [None]
  - INCOHERENT [None]
  - URINARY RETENTION [None]
  - URINE OUTPUT DECREASED [None]
